FAERS Safety Report 5824657-3 (Version None)
Quarter: 2008Q3

REPORT INFORMATION
  Report Type: 
  Country: None (occurrence: None)
  Receive Date: 20080721
  Receipt Date: 20080703
  Transmission Date: 20090109
  Serious: Yes (Death)
  Sender: FDA-Public Use
  Company Number: 6044060

PATIENT
  Age: 27 Year
  Sex: Female

DRUGS (3)
  1. BISOPROLOL FUMARATE [Suspect]
     Route: 048
  2. ATENOLOL [Concomitant]
  3. WARFARIN SODIUM [Concomitant]

REACTIONS (13)
  - AORTIC EMBOLUS [None]
  - AORTIC VALVE DISEASE [None]
  - CAESAREAN SECTION [None]
  - CIRCULATORY COLLAPSE [None]
  - DANDY-WALKER SYNDROME [None]
  - DRUG EXPOSURE DURING PREGNANCY [None]
  - LEFT VENTRICULAR FAILURE [None]
  - LOSS OF CONSCIOUSNESS [None]
  - PREGNANCY [None]
  - REFUSAL OF TREATMENT BY PATIENT [None]
  - THROMBOSIS [None]
  - THROMBOSIS IN DEVICE [None]
  - TREATMENT NONCOMPLIANCE [None]
